FAERS Safety Report 6564554-1 (Version None)
Quarter: 2010Q1

REPORT INFORMATION
  Report Type: 
  Country: None (occurrence: None)
  Receive Date: 20100201
  Receipt Date: 20100119
  Transmission Date: 20100710
  Serious: Yes (Other)
  Sender: FDA-Public Use
  Company Number: PHHY2009IT57756

PATIENT
  Sex: Male

DRUGS (5)
  1. ZOMETA [Suspect]
     Indication: MULTIPLE MYELOMA
     Dosage: 4 MG, UNK
     Route: 042
     Dates: start: 20040601, end: 20070101
  2. AREDIA [Suspect]
     Indication: MULTIPLE MYELOMA
     Dosage: 90 MG, UNK
     Route: 042
     Dates: start: 20040101, end: 20040501
  3. CYCLOPHOSPHAMIDE [Concomitant]
  4. THALIDOMIDE [Concomitant]
  5. ALKERAN [Concomitant]

REACTIONS (3)
  - JAW OPERATION [None]
  - OSTEONECROSIS [None]
  - SEQUESTRECTOMY [None]
